FAERS Safety Report 11103842 (Version 1)
Quarter: 2015Q2

REPORT INFORMATION
  Report Type: Spontaneous
  Country: US (occurrence: US)
  Receive Date: 20150511
  Receipt Date: 20150511
  Transmission Date: 20150821
  Serious: No
  Sender: FDA-Public Use
  Company Number: US-009507513-1505USA002737

PATIENT
  Sex: Male

DRUGS (1)
  1. RAGWITEK [Suspect]
     Active Substance: AMBROSIA ARTEMISIIFOLIA POLLEN
     Indication: SEASONAL ALLERGY
     Dosage: STRENGTH REPORTED AS 12 AMB A1-U
     Route: 060
     Dates: start: 20150429

REACTIONS (1)
  - Throat irritation [Unknown]
